FAERS Safety Report 10026175 (Version 1)
Quarter: 2014Q1

REPORT INFORMATION
  Report Type: Spontaneous
  Country: US (occurrence: US)
  Receive Date: 20140320
  Receipt Date: 20140320
  Transmission Date: 20141002
  Serious: No
  Sender: FDA-Public Use
  Company Number: US-ALLERGAN-1401238US

PATIENT
  Sex: Female

DRUGS (8)
  1. LUMIGAN 0.01% [Suspect]
     Indication: INTRAOCULAR PRESSURE INCREASED
     Dosage: 1 GTT, QHS
     Route: 047
  2. COSOPT [Concomitant]
     Indication: INTRAOCULAR PRESSURE INCREASED
  3. BEXOL EYE DROP [Concomitant]
     Indication: INTRAOCULAR PRESSURE INCREASED
  4. LAMICTAL [Concomitant]
     Indication: DEPRESSION
  5. ACYCLOVIR CAPSULES [Concomitant]
     Indication: INFECTION PROPHYLAXIS
  6. MOBIC [Concomitant]
     Indication: SCIATIC NERVE NEUROPATHY
  7. LOSARTAN [Concomitant]
     Indication: BLOOD PRESSURE
  8. LAMOTRIGINE [Concomitant]
     Indication: PRODUCT USED FOR UNKNOWN INDICATION

REACTIONS (1)
  - Growth of eyelashes [Recovering/Resolving]
